FAERS Safety Report 24634052 (Version 10)
Quarter: 2025Q4

REPORT INFORMATION
  Report Type: Report from Study
  Country: CA (occurrence: CA)
  Receive Date: 20241119
  Receipt Date: 20251007
  Transmission Date: 20260117
  Serious: Yes (Hospitalization, Other)
  Sender: TAKEDA
  Company Number: CA-TAKEDA-2024TUS113740

PATIENT
  Age: 46 Year
  Sex: Male

DRUGS (5)
  1. VEDOLIZUMAB [Suspect]
     Active Substance: VEDOLIZUMAB
     Indication: Colitis ulcerative
     Dosage: 300 MILLIGRAM
  2. VEDOLIZUMAB [Suspect]
     Active Substance: VEDOLIZUMAB
     Dosage: 300 MILLIGRAM, Q4WEEKS
     Dates: start: 20241203
  3. Cortiment [Concomitant]
     Dosage: UNK
  4. MESALAMINE [Concomitant]
     Active Substance: MESALAMINE
     Dosage: 4.8 GRAM, QD
  5. BUPROPION [Concomitant]
     Active Substance: BUPROPION
     Dosage: UNK

REACTIONS (9)
  - Norovirus infection [Recovering/Resolving]
  - Colitis ulcerative [Recovering/Resolving]
  - Haematochezia [Unknown]
  - Mucous stools [Unknown]
  - Loss of therapeutic response [Unknown]
  - Off label use [Unknown]
  - Gastrointestinal pain [Unknown]
  - Impaired work ability [Unknown]
  - Social problem [Unknown]

NARRATIVE: CASE EVENT DATE: 20241203
